FAERS Safety Report 12213214 (Version 3)
Quarter: 2016Q3

REPORT INFORMATION
  Report Type: Report from Study
  Country: DE (occurrence: DE)
  Receive Date: 20160328
  Receipt Date: 20160830
  Transmission Date: 20161109
  Serious: Yes (Hospitalization)
  Sender: FDA-Public Use
  Company Number: PHHY2016DE017028

PATIENT
  Sex: Female
  Weight: 94 kg

DRUGS (3)
  1. AFINITOR [Suspect]
     Active Substance: EVEROLIMUS
     Indication: BREAST CANCER METASTATIC
     Dosage: 5 MG, QD
     Route: 048
     Dates: start: 20141117, end: 20150222
  2. EXEMESTANE. [Concomitant]
     Active Substance: EXEMESTANE
     Indication: BREAST CANCER METASTATIC
     Dosage: 25 MG, QD
     Route: 048
     Dates: start: 20141117
  3. ZOMETA [Concomitant]
     Active Substance: ZOLEDRONIC ACID
     Indication: METASTASES TO BONE
     Dosage: EVERY 4 WEEKS
     Route: 042
     Dates: start: 2010

REACTIONS (5)
  - Lymphadenopathy [Unknown]
  - Feeding disorder [Unknown]
  - Pain [Unknown]
  - Complication associated with device [Unknown]
  - Bone swelling [Recovered/Resolved]

NARRATIVE: CASE EVENT DATE: 20150223
